FAERS Safety Report 16187494 (Version 2)
Quarter: 2019Q2

REPORT INFORMATION
  Report Type: Spontaneous
  Country: JP (occurrence: JP)
  Receive Date: 20190412
  Receipt Date: 20190528
  Transmission Date: 20190711
  Serious: Yes (Hospitalization)
  Sender: FDA-Public Use
  Company Number: JP-ROCHE-2301357

PATIENT
  Age: 69 Year
  Sex: Male

DRUGS (21)
  1. FLOMOX [CEFCAPENE PIVOXIL HYDROCHLORIDE] [Suspect]
     Active Substance: CEFCAPENE PIVOXIL HYDROCHLORIDE
     Indication: PRODUCT USED FOR UNKNOWN INDICATION
     Route: 065
     Dates: start: 20190202
  2. PHELLOBERIN [Concomitant]
     Active Substance: BERBERINE\GERANIUM
  3. TAKEPRON [Concomitant]
     Active Substance: LANSOPRAZOLE
  4. MAGMITT [Concomitant]
     Active Substance: MAGNESIUM OXIDE
  5. ITOROL [Concomitant]
     Active Substance: ISOSORBIDE MONONITRATE
  6. XOFLUZA [Suspect]
     Active Substance: BALOXAVIR MARBOXIL
     Indication: INFLUENZA
     Route: 048
     Dates: start: 20190126, end: 20190126
  7. PROGRAF [Concomitant]
     Active Substance: TACROLIMUS\TACROLIMUS ANHYDROUS
  8. METHYCOBAL [Concomitant]
     Active Substance: METHYLCOBALAMIN
  9. SIGMART [Concomitant]
     Active Substance: NICORANDIL
  10. SPIROPENT [Concomitant]
     Active Substance: CLENBUTEROL HYDROCHLORIDE
  11. ANCARON [Concomitant]
     Active Substance: AMIODARONE HYDROCHLORIDE
  12. MUCOSOLVAN [Concomitant]
     Active Substance: AMBROXOL HYDROCHLORIDE
  13. ARTIST [Concomitant]
     Active Substance: CARVEDILOL
  14. RENIVACE [Concomitant]
     Active Substance: ENALAPRIL
  15. PLAVIX [Concomitant]
     Active Substance: CLOPIDOGREL BISULFATE
  16. WARFARIN [Concomitant]
     Active Substance: WARFARIN
  17. MUCODYNE [Concomitant]
     Active Substance: CARBOCYSTEINE
  18. MEDICON [DEXTROMETHORPHAN HYDROBROMIDE] [Concomitant]
     Active Substance: DEXTROMETHORPHAN HYDROBROMIDE
     Route: 065
     Dates: start: 20190202
  19. ASVERIN (TIPEPIDINE HIBENZATE) [Concomitant]
     Active Substance: TIPEPIDINE HIBENZATE
  20. UNIPHYL [Concomitant]
     Active Substance: THEOPHYLLINE ANHYDROUS
  21. CRESTOR [Concomitant]
     Active Substance: ROSUVASTATIN CALCIUM

REACTIONS (3)
  - Prescribed underdose [Unknown]
  - Internal haemorrhage [Recovering/Resolving]
  - Diarrhoea [Recovering/Resolving]

NARRATIVE: CASE EVENT DATE: 20190205
